FAERS Safety Report 17663151 (Version 1)
Quarter: 2020Q2

REPORT INFORMATION
  Report Type: Spontaneous
  Country: US (occurrence: US)
  Receive Date: 20200413
  Receipt Date: 20200413
  Transmission Date: 20200713
  Serious: Yes (Hospitalization, Other)
  Sender: FDA-Public Use
  Company Number: NVSC2020US096834

PATIENT
  Sex: Male

DRUGS (2)
  1. MEKINIST [Suspect]
     Active Substance: TRAMETINIB DIMETHYL SULFOXIDE
     Indication: BRAIN CANCER METASTATIC
     Dosage: 1.25 MG, QD
     Route: 048
     Dates: start: 20200318
  2. TAFINLAR [Suspect]
     Active Substance: DABRAFENIB MESYLATE
     Indication: BRAIN CANCER METASTATIC
     Dosage: 150 MG, Q12H
     Route: 048
     Dates: start: 20200318

REACTIONS (2)
  - Vomiting [Unknown]
  - Product use in unapproved indication [Unknown]
